FAERS Safety Report 8353407-4 (Version None)
Quarter: 2012Q2

REPORT INFORMATION
  Report Type: 
  Country: None (occurrence: None)
  Receive Date: 20120511
  Receipt Date: 20120508
  Transmission Date: 20120825
  Serious: Yes (Other)
  Sender: FDA-Public Use
  Company Number: US-BAYER-2012-046127

PATIENT
  Age: 45 Year
  Sex: Male
  Weight: 91 kg

DRUGS (3)
  1. ALKA-SELTZER ORIGINAL [Suspect]
     Route: 048
  2. BENADRYL [Concomitant]
  3. NEURONTIN [Concomitant]

REACTIONS (4)
  - SPEECH DISORDER [None]
  - HYPOAESTHESIA [None]
  - SWELLING FACE [None]
  - LIP SWELLING [None]
